FAERS Safety Report 18336732 (Version 2)
Quarter: 2020Q4

REPORT INFORMATION
  Report Type: Spontaneous
  Country: US (occurrence: US)
  Receive Date: 20201002
  Receipt Date: 20201012
  Transmission Date: 20210113
  Serious: No
  Sender: FDA-Public Use
  Company Number: US-AMGEN-USASP2020157125

PATIENT
  Sex: Female

DRUGS (4)
  1. NPLATE [Suspect]
     Active Substance: ROMIPLOSTIM
     Dosage: 9 MICROGRAM/KILOGRAM, QWK
     Route: 058
     Dates: end: 2020
  2. PREDNISONE. [Concomitant]
     Active Substance: PREDNISONE
  3. NPLATE [Suspect]
     Active Substance: ROMIPLOSTIM
     Dosage: UNK, QWK
     Route: 058
  4. NPLATE [Suspect]
     Active Substance: ROMIPLOSTIM
     Indication: IMMUNE THROMBOCYTOPENIA
     Dosage: 2 MICROGRAM/KILOGRAM, QWK
     Route: 058
     Dates: start: 20200424

REACTIONS (1)
  - Drug ineffective [Unknown]
